FAERS Safety Report 23921371 (Version 1)
Quarter: 2024Q2

REPORT INFORMATION
  Report Type: Spontaneous
  Country: US (occurrence: None)
  Receive Date: 20240530
  Receipt Date: 20240530
  Transmission Date: 20240716
  Serious: Yes (Other)
  Sender: FDA-Public Use
  Company Number: None

PATIENT
  Age: 85 Year
  Sex: Female
  Weight: 65.77 kg

DRUGS (21)
  1. PROLIA [Suspect]
     Active Substance: DENOSUMAB
     Indication: Osteoporosis
     Dosage: 60 MG 2 X /YR. INJECTION ?
     Dates: start: 201206, end: 202311
  2. PROLIA [Suspect]
     Active Substance: DENOSUMAB
     Indication: Osteopenia
  3. ATENOLOL [Concomitant]
     Active Substance: ATENOLOL
  4. LOSARTAN POTASSIUM [Concomitant]
     Active Substance: LOSARTAN POTASSIUM
  5. HYDROCHLOROTHIAZIOE [Concomitant]
  6. MYRBETRIQ [Concomitant]
     Active Substance: MIRABEGRON
  7. GABAPENTIN [Concomitant]
     Active Substance: GABAPENTIN
  8. IPRATRIUM BROMIDE [Concomitant]
  9. SIMVASTATIN [Concomitant]
     Active Substance: SIMVASTATIN
  10. EZETIMIBE [Concomitant]
     Active Substance: EZETIMIBE
  11. ASPIRIN [Concomitant]
     Active Substance: ASPIRIN
  12. NAPROXEN [Concomitant]
     Active Substance: NAPROXEN
  13. MULTI-VITAMINS [Concomitant]
  14. VID. D3 [Concomitant]
  15. MAGNESIUM [Concomitant]
  16. FLAXSEED [Concomitant]
     Active Substance: FLAX SEED
  17. HERBALS\TURMERIC [Concomitant]
     Active Substance: HERBALS\TURMERIC
  18. VITAMIN E [Concomitant]
     Active Substance: .ALPHA.-TOCOPHEROL
  19. COENZYME Q10 [Concomitant]
     Active Substance: DIETARY SUPPLEMENT\UBIDECARENONE
  20. TUMS [Concomitant]
     Active Substance: CALCIUM CARBONATE
  21. BENADRYL [Concomitant]
     Active Substance: DIPHENHYDRAMINE HYDROCHLORIDE

REACTIONS (4)
  - Femur fracture [None]
  - Jaw disorder [None]
  - Exostosis of jaw [None]
  - Refusal of treatment by patient [None]

NARRATIVE: CASE EVENT DATE: 20230101
